FAERS Safety Report 5066554-X (Version None)
Quarter: 2006Q3

REPORT INFORMATION
  Report Type: 
  Country: None (occurrence: None)
  Receive Date: 20060726
  Receipt Date: 20060623
  Transmission Date: 20061208
  Serious: Yes (Other)
  Sender: FDA-Public Use
  Company Number: 2006067634

PATIENT
  Age: 64 Year
  Sex: Female
  Weight: 72.5755 kg

DRUGS (3)
  1. XALATAN [Suspect]
     Indication: GLAUCOMA
     Dosage: 2 DROP (1 DROP, 1 IN 1 D), UNKNOWN
  2. MONOPRIL [Concomitant]
  3. SYNTHROID [Concomitant]

REACTIONS (4)
  - APPLICATION SITE PAIN [None]
  - INCORRECT DOSE ADMINISTERED [None]
  - INTRAOCULAR PRESSURE INCREASED [None]
  - MEDICATION TAMPERING [None]
